FAERS Safety Report 5129710-8 (Version None)
Quarter: 2006Q4

REPORT INFORMATION
  Report Type: 
  Country: None (occurrence: None)
  Receive Date: 20061018
  Receipt Date: 20060707
  Transmission Date: 20070319
  Serious: Yes (Hospitalization)
  Sender: FDA-Public Use
  Company Number: DE-GLAXOSMITHKLINE-D0050251A

PATIENT
  Age: 65 Year
  Sex: Female
  Weight: 50 kg

DRUGS (5)
  1. QUILONUM RETARD [Suspect]
     Dosage: 1125MG PER DAY
     Route: 048
     Dates: start: 20060101
  2. PAROXETINE HCL [Concomitant]
     Dosage: 60MG PER DAY
     Route: 065
  3. ZYPREXA [Concomitant]
     Dosage: 10MG AT NIGHT
     Route: 065
  4. VENLAFAXINE HCL [Concomitant]
     Dosage: 75MG TWICE PER DAY
     Route: 048
     Dates: start: 20060523, end: 20060726
  5. TAVOR [Concomitant]
     Dosage: 4MG PER DAY
     Route: 065

REACTIONS (9)
  - ASTHENIA [None]
  - FAECALOMA [None]
  - GENERAL PHYSICAL HEALTH DETERIORATION [None]
  - HYPOKALAEMIA [None]
  - POLYNEUROPATHY [None]
  - SENSORY DISTURBANCE [None]
  - SUBILEUS [None]
  - THERAPEUTIC AGENT TOXICITY [None]
  - WEIGHT DECREASED [None]
